FAERS Safety Report 13591239 (Version 3)
Quarter: 2017Q4

REPORT INFORMATION
  Report Type: Spontaneous
  Country: FR (occurrence: FR)
  Receive Date: 20170530
  Receipt Date: 20171205
  Transmission Date: 20180320
  Serious: Yes (Death, Other)
  Sender: FDA-Public Use
  Company Number: FR-PFIZER INC-2017231512

PATIENT
  Age: 64 Year
  Sex: Male

DRUGS (11)
  1. ESOMEPRAZOLE [Concomitant]
     Active Substance: ESOMEPRAZOLE
  2. METFORMIN [Concomitant]
     Active Substance: METFORMIN HYDROCHLORIDE
  3. DIFFU K [Concomitant]
     Active Substance: POTASSIUM CHLORIDE
  4. TAHOR [Concomitant]
     Active Substance: ATORVASTATIN CALCIUM
  5. IMOVANE [Concomitant]
     Active Substance: ZOPICLONE
  6. PRODILANTIN [Suspect]
     Active Substance: FOSPHENYTOIN SODIUM
     Indication: STATUS EPILEPTICUS
     Dosage: 1.5 G OVER 20 MINUTES ONCE
     Route: 041
     Dates: start: 20170501, end: 20170501
  7. AVODART [Concomitant]
     Active Substance: DUTASTERIDE
  8. LERCAN [Concomitant]
     Active Substance: LERCANIDIPINE
  9. LYRICA [Concomitant]
     Active Substance: PREGABALIN
  10. LIORESAL [Concomitant]
     Active Substance: BACLOFEN
  11. COUMADINE [Concomitant]
     Active Substance: WARFARIN SODIUM

REACTIONS (5)
  - Neurological decompensation [Fatal]
  - Hypotension [Fatal]
  - Cardiac arrest [Fatal]
  - Electrocardiogram ST segment depression [Unknown]
  - Bradycardia [Unknown]

NARRATIVE: CASE EVENT DATE: 20170501
